FAERS Safety Report 4338562-5 (Version None)
Quarter: 2004Q2

REPORT INFORMATION
  Report Type: 
  Country: None (occurrence: None)
  Receive Date: 20040409
  Receipt Date: 20040325
  Transmission Date: 20050107
  Serious: Yes (Hospitalization)
  Sender: FDA-Public Use
  Company Number: 2000-DE-03096

PATIENT
  Age: 33 Year
  Sex: Female

DRUGS (3)
  1. VIRAMUNE [Suspect]
     Indication: PROPHYLAXIS AGAINST HIV INFECTION
     Dosage: 200 MG (2X100MG) PO
     Route: 048
     Dates: start: 19991125, end: 19991221
  2. ZERIT [Concomitant]
  3. VIDEX [Concomitant]

REACTIONS (8)
  - ABDOMINAL PAIN UPPER [None]
  - EOSINOPHILIA [None]
  - FATIGUE [None]
  - HEPATIC ENZYME INCREASED [None]
  - LYMPHADENOPATHY [None]
  - MALAISE [None]
  - NAUSEA [None]
  - PYREXIA [None]
